FAERS Safety Report 12394063 (Version 2)
Quarter: 2020Q2

REPORT INFORMATION
  Report Type: Spontaneous
  Country: US (occurrence: US)
  Receive Date: 20160523
  Receipt Date: 20200602
  Transmission Date: 20200713
  Serious: Yes (Death, Other)
  Sender: FDA-Public Use
  Company Number: US-009507513-1605USA010230

PATIENT
  Sex: Female
  Weight: 58.96 kg

DRUGS (5)
  1. VICTOZA [Suspect]
     Active Substance: LIRAGLUTIDE
     Indication: TYPE 2 DIABETES MELLITUS
     Dosage: 0.6 MG, ONCE DAILY
     Dates: start: 20110907, end: 201311
  2. XELODA [Suspect]
     Active Substance: CAPECITABINE
     Dosage: 1000 MG, TWICE DAILY
     Dates: start: 201501
  3. JANUVIA [Suspect]
     Active Substance: SITAGLIPTIN PHOSPHATE
     Indication: TYPE 2 DIABETES MELLITUS
     Dosage: UNK
     Route: 048
     Dates: end: 2012
  4. JANUMET [Suspect]
     Active Substance: METFORMIN HYDROCHLORIDE\SITAGLIPTIN PHOSPHATE
     Indication: TYPE 2 DIABETES MELLITUS
     Dosage: 50-1000 MG TABLET, TWICE A DAY
     Route: 048
     Dates: start: 20100714, end: 201206
  5. OXALIPLATIN. [Suspect]
     Active Substance: OXALIPLATIN
     Dosage: UNK
     Dates: start: 201501

REACTIONS (30)
  - Pancreatic carcinoma metastatic [Fatal]
  - Helicobacter gastritis [Unknown]
  - Chronic kidney disease [Unknown]
  - Oxygen saturation decreased [Recovered/Resolved]
  - Emotional distress [Recovered/Resolved]
  - Neutropenia [Recovered/Resolved]
  - Pneumonia [Unknown]
  - Cystitis [Unknown]
  - Cancer fatigue [Unknown]
  - Gastrointestinal submucosal tumour [Unknown]
  - Metastases to lymph nodes [Unknown]
  - Cheilitis [Unknown]
  - Arthralgia [Unknown]
  - Nephrolithiasis [Unknown]
  - Neuropathy peripheral [Unknown]
  - Noninfective gingivitis [Unknown]
  - Peripheral swelling [Unknown]
  - Insomnia [Unknown]
  - Sinusitis [Unknown]
  - Pancreatic duct dilatation [Unknown]
  - Tearfulness [Unknown]
  - Diarrhoea [Unknown]
  - Acute kidney injury [Unknown]
  - Blood pressure systolic increased [Recovered/Resolved]
  - Anaemia [Unknown]
  - Tumour invasion [Unknown]
  - Metastases to liver [Unknown]
  - Metastases to peritoneum [Unknown]
  - Hyperlipidaemia [Unknown]
  - Back pain [Unknown]

NARRATIVE: CASE EVENT DATE: 2014
